FAERS Safety Report 6767556-5 (Version None)
Quarter: 2010Q2

REPORT INFORMATION
  Report Type: 
  Country: None (occurrence: None)
  Receive Date: 20100610
  Receipt Date: 20100524
  Transmission Date: 20101027
  Serious: Yes (Other)
  Sender: FDA-Public Use
  Company Number: US-1182098

PATIENT
  Sex: Male

DRUGS (1)
  1. DIFLUPREDNATE 0.05 % OPHTHALMIC EMULSION [Suspect]
     Dosage: (OPHTHALMIC)
     Route: 047

REACTIONS (1)
  - IRIS DISORDER [None]
